FAERS Safety Report 12160018 (Version 8)
Quarter: 2018Q2

REPORT INFORMATION
  Report Type: Spontaneous
  Country: US (occurrence: US)
  Receive Date: 20160308
  Receipt Date: 20180613
  Transmission Date: 20180711
  Serious: Yes (Hospitalization)
  Sender: FDA-Public Use
  Company Number: US-ACTELION PHARMACEUTICALS US, INC.-A-US2016-132543

PATIENT
  Age: 62 Year
  Sex: Female

DRUGS (12)
  1. OPSUMIT [Suspect]
     Active Substance: MACITENTAN
     Indication: PULMONARY ARTERIAL HYPERTENSION
     Dosage: 10 MG, QD
     Route: 048
     Dates: start: 20160212
  2. ABILIFY [Concomitant]
     Active Substance: ARIPIPRAZOLE
  3. WARFARIN [Concomitant]
     Active Substance: WARFARIN
  4. MELOXICAM. [Concomitant]
     Active Substance: MELOXICAM
  5. FLONASE [Concomitant]
     Active Substance: FLUTICASONE PROPIONATE
  6. PRAMIPEXOLE. [Concomitant]
     Active Substance: PRAMIPEXOLE
  7. SYNTHROID [Concomitant]
     Active Substance: LEVOTHYROXINE SODIUM
  8. VENLAFAXINE [Concomitant]
     Active Substance: VENLAFAXINE HYDROCHLORIDE
  9. MIRALAX [Concomitant]
     Active Substance: POLYETHYLENE GLYCOL 3350
  10. LINZESS [Concomitant]
     Active Substance: LINACLOTIDE
  11. ADVAIR HFA [Concomitant]
     Active Substance: FLUTICASONE PROPIONATE\SALMETEROL XINAFOATE
  12. SAVELLA [Concomitant]
     Active Substance: MILNACIPRAN HYDROCHLORIDE

REACTIONS (17)
  - Respiratory tract infection [Unknown]
  - Pneumonia [Unknown]
  - Fatigue [Not Recovered/Not Resolved]
  - Liver function test increased [Unknown]
  - Fluid retention [Unknown]
  - Pruritus [Unknown]
  - Malaise [Unknown]
  - Incorrect dose administered [Unknown]
  - Peripheral swelling [Unknown]
  - International normalised ratio increased [Not Recovered/Not Resolved]
  - Dizziness [Not Recovered/Not Resolved]
  - Upper respiratory tract infection [Unknown]
  - Chest pain [Not Recovered/Not Resolved]
  - Influenza [Unknown]
  - Bronchitis [Unknown]
  - Sinusitis [Unknown]
  - Anaemia [Unknown]

NARRATIVE: CASE EVENT DATE: 20160216
